FAERS Safety Report 19897084 (Version 1)
Quarter: 2021Q3

REPORT INFORMATION
  Report Type: Spontaneous
  Country: US (occurrence: US)
  Receive Date: 20210929
  Receipt Date: 20210929
  Transmission Date: 20211014
  Serious: No
  Sender: FDA-Public Use
  Company Number: US-OTSUKA-2021_012826

PATIENT
  Age: 67 Year
  Sex: Female

DRUGS (1)
  1. REXULTI [Suspect]
     Active Substance: BREXPIPRAZOLE
     Indication: DEPRESSION
     Dosage: 1 MG
     Route: 065
     Dates: start: 202101, end: 20210409

REACTIONS (2)
  - Drug monitoring procedure not performed [Unknown]
  - Tongue thrust [Recovered/Resolved]

NARRATIVE: CASE EVENT DATE: 202101
